FAERS Safety Report 6656211-8 (Version None)
Quarter: 2010Q1

REPORT INFORMATION
  Report Type: 
  Country: None (occurrence: None)
  Receive Date: 20100326
  Receipt Date: 20100326
  Transmission Date: 20100710
  Serious: Yes (Other)
  Sender: FDA-Public Use
  Company Number: None

PATIENT
  Age: 64 Year
  Sex: Female
  Weight: 90.7194 kg

DRUGS (4)
  1. BENZONATATE [Suspect]
     Indication: ANTITUSSIVE THERAPY
     Dosage: ONE CAPSULE BY MOUTH THREE TMES DAILY PO 6 -1/3 DAYS
     Route: 048
     Dates: start: 20100322, end: 20100329
  2. BENZONATATE [Suspect]
     Indication: BRONCHITIS
     Dosage: ONE CAPSULE BY MOUTH THREE TMES DAILY PO 6 -1/3 DAYS
     Route: 048
     Dates: start: 20100322, end: 20100329
  3. AZITHROMYCIN [Suspect]
     Indication: BACTERIAL INFECTION
     Dosage: 2 TABLETS DAY 1 AND1 TBLT ONCE 4 MORE DAYS PO
     Route: 048
     Dates: start: 20100323, end: 20100327
  4. AZITHROMYCIN [Suspect]
     Indication: BRONCHITIS
     Dosage: 2 TABLETS DAY 1 AND1 TBLT ONCE 4 MORE DAYS PO
     Route: 048
     Dates: start: 20100323, end: 20100327

REACTIONS (4)
  - ABDOMINAL PAIN LOWER [None]
  - DIARRHOEA [None]
  - FAECAL INCONTINENCE [None]
  - HEADACHE [None]
